FAERS Safety Report 17842964 (Version 1)
Quarter: 2020Q2

REPORT INFORMATION
  Report Type: Spontaneous
  Country: JP (occurrence: JP)
  Receive Date: 20200530
  Receipt Date: 20200530
  Transmission Date: 20200714
  Serious: Yes (Death, Other)
  Sender: FDA-Public Use
  Company Number: JP-AUROBINDO-AUR-APL-2020-026367

PATIENT
  Sex: Male

DRUGS (1)
  1. FOLOTYN [Suspect]
     Active Substance: PRALATREXATE
     Indication: MYELOFIBROSIS
     Dosage: UNK
     Route: 042

REACTIONS (2)
  - Acute kidney injury [Fatal]
  - Blood lactate dehydrogenase decreased [Unknown]
